FAERS Safety Report 20805187 (Version 37)
Quarter: 2024Q3

REPORT INFORMATION
  Report Type: Report from Study
  Country: JP (occurrence: JP)
  Receive Date: 20220509
  Receipt Date: 20240826
  Transmission Date: 20241016
  Serious: Yes (Hospitalization, Other)
  Sender: TAKEDA
  Company Number: JP-TAKEDA-2022TJP045629

PATIENT
  Age: 58 Year
  Sex: Female

DRUGS (21)
  1. ICATIBANT [Suspect]
     Active Substance: ICATIBANT ACETATE
     Indication: Hereditary angioedema
     Dosage: 30 MILLIGRAM
     Route: 058
     Dates: start: 202204, end: 202204
  2. ICATIBANT [Suspect]
     Active Substance: ICATIBANT ACETATE
     Indication: Hereditary angioedema
     Dosage: 30 MILLIGRAM
     Route: 058
     Dates: start: 202204, end: 202204
  3. ICATIBANT [Suspect]
     Active Substance: ICATIBANT ACETATE
     Dosage: 30 MILLIGRAM
     Route: 058
     Dates: start: 20230512, end: 20230512
  4. ICATIBANT [Suspect]
     Active Substance: ICATIBANT ACETATE
     Dosage: 30 MILLIGRAM
     Route: 058
     Dates: start: 20230512, end: 20230512
  5. ICATIBANT [Suspect]
     Active Substance: ICATIBANT ACETATE
     Dosage: 30 MILLIGRAM
     Route: 058
     Dates: start: 20230613, end: 20230613
  6. ICATIBANT [Suspect]
     Active Substance: ICATIBANT ACETATE
     Dosage: 30 MILLIGRAM
     Route: 058
     Dates: start: 20230613, end: 20230613
  7. ICATIBANT [Suspect]
     Active Substance: ICATIBANT ACETATE
     Dosage: 30 MILLIGRAM
     Route: 058
     Dates: start: 20231103, end: 20231103
  8. ICATIBANT [Suspect]
     Active Substance: ICATIBANT ACETATE
     Dosage: 30 MILLIGRAM
     Route: 058
     Dates: start: 20231103, end: 20231103
  9. ICATIBANT [Suspect]
     Active Substance: ICATIBANT ACETATE
     Dosage: 30 MILLIGRAM
     Route: 058
     Dates: start: 20231104, end: 20231104
  10. ICATIBANT [Suspect]
     Active Substance: ICATIBANT ACETATE
     Dosage: 30 MILLIGRAM
     Route: 058
     Dates: start: 20231104, end: 20231104
  11. ICATIBANT [Suspect]
     Active Substance: ICATIBANT ACETATE
     Dosage: 30 MILLIGRAM
     Route: 058
     Dates: start: 20240108, end: 20240108
  12. ICATIBANT [Suspect]
     Active Substance: ICATIBANT ACETATE
     Dosage: 30 MILLIGRAM
     Route: 058
     Dates: start: 20240108, end: 20240108
  13. TAKHZYRO [Suspect]
     Active Substance: LANADELUMAB-FLYO
     Indication: Hereditary angioedema
     Dosage: 300 MILLIGRAM
     Route: 058
     Dates: start: 20220726, end: 20220726
  14. TAKHZYRO [Suspect]
     Active Substance: LANADELUMAB-FLYO
     Dosage: 300 MILLIGRAM
     Route: 058
     Dates: start: 20220809
  15. TAKHZYRO [Suspect]
     Active Substance: LANADELUMAB-FLYO
     Dosage: 300 MILLIGRAM
     Route: 058
     Dates: start: 20220920
  16. TAKHZYRO [Suspect]
     Active Substance: LANADELUMAB-FLYO
     Dosage: 300 MILLIGRAM, Q2WEEKS
     Route: 058
  17. PREDONINE [Concomitant]
     Active Substance: PREDNISOLONE
     Indication: Urticaria
     Dosage: 5 MILLIGRAM/DAY
     Route: 048
  18. PREDONINE [Concomitant]
     Active Substance: PREDNISOLONE
     Indication: Hereditary angioedema
     Dosage: 4 MILLIGRAM
     Route: 048
  19. PREDONINE [Concomitant]
     Active Substance: PREDNISOLONE
     Dosage: 3 MILLIGRAM
     Route: 048
     Dates: end: 202311
  20. DIETARY SUPPLEMENT\PROBIOTICS [Concomitant]
     Active Substance: DIETARY SUPPLEMENT\PROBIOTICS NOS
     Indication: Abdominal symptom
     Dosage: UNK
     Route: 065
  21. CORTRIL [Concomitant]
     Active Substance: HYDROCORTISONE
     Dosage: UNK
     Route: 065
     Dates: start: 202311

REACTIONS (67)
  - Tooth injury [Unknown]
  - Ascites [Unknown]
  - Post procedural haemorrhage [Unknown]
  - Coronavirus infection [Recovering/Resolving]
  - Tooth injury [Unknown]
  - Pyelonephritis [Unknown]
  - Pyelonephritis [Unknown]
  - Nasopharyngitis [Unknown]
  - Coronavirus infection [Unknown]
  - Coronavirus pneumonia [Unknown]
  - Contusion [Unknown]
  - Hereditary angioedema [Unknown]
  - Discouragement [Unknown]
  - Physical deconditioning [Unknown]
  - Malaise [Unknown]
  - Osteoporosis [Unknown]
  - Teeth brittle [Unknown]
  - Psychiatric symptom [Unknown]
  - Procedural pain [Unknown]
  - Myalgia [Unknown]
  - Heat exhaustion [Unknown]
  - Decreased appetite [Unknown]
  - Stress [Unknown]
  - Injection site discolouration [Unknown]
  - Miliaria [Unknown]
  - Purpura [Unknown]
  - Administration site extravasation [Unknown]
  - Joint effusion [Unknown]
  - Hypoaesthesia [Unknown]
  - Arthralgia [Unknown]
  - Osteoporosis [Unknown]
  - Injection site pain [Unknown]
  - Injection site discolouration [Recovered/Resolved]
  - Injection site bruising [Recovered/Resolved]
  - Diarrhoea [Unknown]
  - Abdominal pain [Unknown]
  - Cold sweat [Unknown]
  - Diarrhoea [Unknown]
  - Affect lability [Unknown]
  - Postoperative adhesion [Unknown]
  - Gastric polyps [Unknown]
  - Injection site pain [Unknown]
  - Myalgia [Unknown]
  - Injection site pain [Unknown]
  - Injection site pain [Unknown]
  - Injection site bruising [Unknown]
  - Injection site pain [Unknown]
  - Contusion [Unknown]
  - Injection site pain [Unknown]
  - Injection site pain [Unknown]
  - Myalgia [Unknown]
  - Physical deconditioning [Unknown]
  - Dyshidrotic eczema [Unknown]
  - Musculoskeletal stiffness [Unknown]
  - Arthralgia [Unknown]
  - Joint noise [Unknown]
  - Bronchitis [Unknown]
  - Drug hypersensitivity [Unknown]
  - Injection site pain [Unknown]
  - Injection site erythema [Unknown]
  - Injection site swelling [Unknown]
  - Nausea [Unknown]
  - Injection site haemorrhage [Unknown]
  - Injection site haemorrhage [Unknown]
  - Injection site pain [Unknown]
  - Taste disorder [Recovering/Resolving]
  - Pain [Unknown]

NARRATIVE: CASE EVENT DATE: 20220401
